FAERS Safety Report 18261192 (Version 5)
Quarter: 2020Q4

REPORT INFORMATION
  Report Type: Spontaneous
  Country: DE (occurrence: DE)
  Receive Date: 20200914
  Receipt Date: 20201222
  Transmission Date: 20210113
  Serious: Yes (Hospitalization, Other)
  Sender: FDA-Public Use
  Company Number: DE-AUROBINDO-AUR-APL-2020-047583

PATIENT
  Age: 18 Year
  Sex: Male
  Weight: 75 kg

DRUGS (17)
  1. METHOTREXATE. [Interacting]
     Active Substance: METHOTREXATE
     Dosage: 12000 MILLIGRAM/SQ. METER, CYCLICAL, (MTX (12,000 MG/M2 BSA (BODY SURFACE AREA)))
     Route: 042
  2. METHOTREXATE. [Interacting]
     Active Substance: METHOTREXATE
     Dosage: 76 MICROMOLE PER LITRE
     Route: 065
  3. CALCIUM FOLINATE [Concomitant]
     Active Substance: LEUCOVORIN CALCIUM
     Indication: OSTEOSARCOMA
     Dosage: 300 MILLIGRAM/SQ. METER, FOUR TIMES/DAY, (INTENSIFIED CF RESCUE THERAPY)
     Route: 065
  4. LEUCOVORIN. [Concomitant]
     Active Substance: LEUCOVORIN
     Indication: PRODUCT USED FOR UNKNOWN INDICATION
     Dosage: UNK UNK, FOUR TIMES/DAY
     Route: 065
  5. PIPERACILLIN+TAZOBACTAM INJECTION [Suspect]
     Active Substance: PIPERACILLIN SODIUM\TAZOBACTAM SODIUM
     Indication: URINARY TRACT INFECTION
     Dosage: 4.5 MILLIGRAM, FOUR TIMES/DAY (5 DOSE)
     Route: 065
  6. METHOTREXATE. [Interacting]
     Active Substance: METHOTREXATE
     Dosage: 23 MICROMOLE PER LITRE
     Route: 065
  7. METHOTREXATE. [Interacting]
     Active Substance: METHOTREXATE
     Dosage: 12000 MILLIGRAM/SQ. METER, CYCLICAL, (NEOADJUVANT CYCLE 1 : COURSE 1: WEEK 4)
     Route: 042
  8. PIPERACILLIN+TAZOBACTAM INJECTION [Interacting]
     Active Substance: PIPERACILLIN SODIUM\TAZOBACTAM SODIUM
     Dosage: 4.5 GRAM, FOUR TIMES/DAY, (PIPERACILLIN-TAZOBACTAM 4.5 G DOSE)
     Route: 042
  9. METHOTREXATE. [Interacting]
     Active Substance: METHOTREXATE
     Indication: OSTEOSARCOMA
     Dosage: 7.1 MICROMOLE PER LITRE
     Route: 065
  10. METHOTREXATE. [Interacting]
     Active Substance: METHOTREXATE
     Dosage: 7.6 MICROMOLE PER LITRE
     Route: 065
  11. CISPLATIN. [Concomitant]
     Active Substance: CISPLATIN
     Indication: OSTEOSARCOMA
     Dosage: UNK, CYCLICAL
     Route: 065
  12. DOXORUBICIN [Concomitant]
     Active Substance: DOXORUBICIN
     Indication: OSTEOSARCOMA
     Dosage: UNK, CYCLICAL
     Route: 065
  13. METHOTREXATE. [Interacting]
     Active Substance: METHOTREXATE
     Dosage: 13 MICROMOLE PER LITRE
     Route: 065
  14. METHOTREXATE. [Interacting]
     Active Substance: METHOTREXATE
     Dosage: HIGH-DOSE MTX INFUSION
     Route: 065
  15. METHOTREXATE. [Interacting]
     Active Substance: METHOTREXATE
     Dosage: UNK 12000 MG/M2, CYCLICAL NEOADJUVANT CYCLE 1 : COURSE 1: WEEK
     Route: 065
  16. PIPERACILLIN+TAZOBACTAM INJECTION [Interacting]
     Active Substance: PIPERACILLIN SODIUM\TAZOBACTAM SODIUM
     Indication: PYREXIA
     Dosage: HIGH-DOSE PIPERACILLIN-TAZOBACTAM
     Route: 065
  17. METHOTREXATE. [Interacting]
     Active Substance: METHOTREXATE
     Dosage: ADMINISTRATION OMITTED,
     Route: 065

REACTIONS (14)
  - Drug level increased [Recovered/Resolved]
  - Neurotoxicity [Recovered/Resolved]
  - Toxicity to various agents [Recovered/Resolved]
  - Renal failure [Recovered/Resolved]
  - Acute kidney injury [Recovered/Resolved]
  - Drug interaction [Recovered/Resolved]
  - Paraesthesia [Recovered/Resolved]
  - Nephropathy toxic [Recovered/Resolved]
  - Myelopathy [Recovered/Resolved]
  - Extraocular muscle paresis [Recovered/Resolved]
  - Muscular weakness [Recovered/Resolved]
  - Paraparesis [Recovered/Resolved]
  - Diplopia [Recovered/Resolved]
  - Neurological symptom [Recovered/Resolved]
